FAERS Safety Report 5721310-1 (Version None)
Quarter: 2008Q2

REPORT INFORMATION
  Report Type: 
  Country: None (occurrence: None)
  Receive Date: 20080428
  Receipt Date: 20080428
  Transmission Date: 20081010
  Serious: No
  Sender: FDA-Public Use
  Company Number: None

PATIENT
  Sex: Female
  Weight: 47.6277 kg

DRUGS (2)
  1. LAMICTAL [Suspect]
     Indication: BIPOLAR II DISORDER
     Dosage: 200 MG 1X A DAY
     Dates: start: 20050401, end: 20060701
  2. EFFEXOR [Concomitant]

REACTIONS (3)
  - BIPOLAR II DISORDER [None]
  - IATROGENIC INJURY [None]
  - SUICIDE ATTEMPT [None]
